FAERS Safety Report 23877019 (Version 1)
Quarter: 2024Q2

REPORT INFORMATION
  Report Type: Spontaneous
  Country: US (occurrence: US)
  Receive Date: 20240521
  Receipt Date: 20240521
  Transmission Date: 20240715
  Serious: Yes (Hospitalization)
  Sender: FDA-Public Use
  Company Number: US-AMNEAL PHARMACEUTICALS-2024-AMRX-01702

PATIENT
  Age: 69 Year
  Sex: Female
  Weight: 77.098 kg

DRUGS (1)
  1. CLOBETASOL PROPIONATE [Suspect]
     Active Substance: CLOBETASOL PROPIONATE
     Indication: Eczema
     Dosage: 0.05%
     Route: 061
     Dates: start: 20231022, end: 20231023

REACTIONS (5)
  - Pyrexia [Recovered/Resolved]
  - Eczema [Unknown]
  - Infection [Recovered/Resolved]
  - Rash [Recovered/Resolved]
  - Product contamination microbial [Unknown]

NARRATIVE: CASE EVENT DATE: 20231022
